FAERS Safety Report 23723270 (Version 1)
Quarter: 2024Q2

REPORT INFORMATION
  Report Type: Spontaneous
  Country: US (occurrence: US)
  Receive Date: 20240409
  Receipt Date: 20240409
  Transmission Date: 20240715
  Serious: No
  Sender: FDA-Public Use
  Company Number: US-ELI_LILLY_AND_COMPANY-US202404002866

PATIENT
  Age: 54 Year
  Sex: Male

DRUGS (2)
  1. TALTZ [Suspect]
     Active Substance: IXEKIZUMAB
     Indication: Psoriasis
     Dosage: 80 MG, UNKNOWN
     Route: 058
     Dates: start: 2022
  2. TALTZ [Suspect]
     Active Substance: IXEKIZUMAB
     Indication: Eczema
     Dosage: 80 MG, UNKNOWN
     Route: 058

REACTIONS (2)
  - Incorrect dose administered [Unknown]
  - Injection site coldness [Recovered/Resolved]

NARRATIVE: CASE EVENT DATE: 20240402
